FAERS Safety Report 9669831 (Version 1)
Quarter: 2013Q4

REPORT INFORMATION
  Report Type: Spontaneous
  Country: GB (occurrence: GB)
  Receive Date: 20131105
  Receipt Date: 20131105
  Transmission Date: 20140711
  Serious: Yes (Other)
  Sender: FDA-Public Use
  Company Number: GB-PFIZER INC-2013314985

PATIENT
  Sex: 0

DRUGS (3)
  1. NICOTINE [Suspect]
     Dosage: UNK
     Route: 064
  2. HEROIN [Suspect]
     Dosage: UNK
     Route: 064
  3. SUBUTEX [Suspect]
     Indication: DEPENDENCE
     Dosage: 10 MG, 1X/DAY
     Route: 064
     Dates: start: 20060504, end: 20060808

REACTIONS (2)
  - Maternal exposure during pregnancy [Recovered/Resolved]
  - Drug withdrawal syndrome neonatal [Unknown]
